FAERS Safety Report 4331884-3 (Version None)
Quarter: 2004Q1

REPORT INFORMATION
  Report Type: 
  Country: None (occurrence: None)
  Receive Date: 20040329
  Receipt Date: 20040313
  Transmission Date: 20041129
  Serious: No
  Sender: FDA-Public Use
  Company Number: CERZ-10539

PATIENT
  Age: 26 Year
  Sex: Male
  Weight: 39 kg

DRUGS (1)
  1. CEREZYME [Suspect]
     Indication: GAUCHER'S DISEASE
     Dosage: 4800 UNITS Q4WKS; IV
     Route: 042
     Dates: start: 19981023

REACTIONS (2)
  - FEMUR FRACTURE [None]
  - PATHOLOGICAL FRACTURE [None]
